FAERS Safety Report 7908095-5 (Version None)
Quarter: 2011Q4

REPORT INFORMATION
  Report Type: 
  Country: None (occurrence: None)
  Receive Date: 20111111
  Receipt Date: 20111103
  Transmission Date: 20120403
  Serious: Yes (Hospitalization)
  Sender: FDA-Public Use
  Company Number: US-BIOGENIDEC-2011BI042520

PATIENT
  Age: 75 Year
  Sex: Female

DRUGS (17)
  1. TYSABRI [Suspect]
     Indication: MULTIPLE SCLEROSIS
     Route: 042
     Dates: start: 20080109
  2. ACETAMINOPHEN [Concomitant]
     Route: 048
  3. PSEUDOEPHEDRINE HCL [Concomitant]
     Route: 048
  4. PREDNISONE TAB [Concomitant]
  5. NAPROXEN [Concomitant]
     Route: 048
  6. LACTOBACILLUS [Concomitant]
     Route: 048
  7. CHOLECALCIFEROL [Concomitant]
     Route: 048
  8. BACLOFEN [Concomitant]
     Route: 048
  9. LOVASTATIN [Concomitant]
     Route: 048
  10. CETIRIZINE HCL [Concomitant]
     Route: 048
  11. CHOLESTYRAMINE [Concomitant]
     Route: 048
  12. GUAIFENESIN [Concomitant]
     Route: 048
  13. MULTIPLE VITAMIN [Concomitant]
     Route: 048
  14. OXYBUTYNIN [Concomitant]
     Route: 048
  15. CALCIUM [Concomitant]
     Route: 048
  16. DIPHENHYDRAMINE HCL [Concomitant]
     Route: 048
  17. FUROSEMIDE [Concomitant]
     Route: 048

REACTIONS (1)
  - DEEP VEIN THROMBOSIS [None]
